FAERS Safety Report 8247758-1 (Version None)
Quarter: 2012Q1

REPORT INFORMATION
  Report Type: 
  Country: None (occurrence: None)
  Receive Date: 20120330
  Receipt Date: 20120323
  Transmission Date: 20120608
  Serious: Yes (Hospitalization)
  Sender: FDA-Public Use
  Company Number: IT-GLAXOSMITHKLINE-B0791905A

PATIENT
  Sex: Male

DRUGS (3)
  1. ALBUTEROL SULFATE [Suspect]
     Indication: CHRONIC OBSTRUCTIVE PULMONARY DISEASE
     Route: 065
     Dates: start: 20091215, end: 20091215
  2. FLUTICASONE PROPIONATE [Suspect]
     Indication: CHRONIC OBSTRUCTIVE PULMONARY DISEASE
     Route: 065
     Dates: start: 20091215, end: 20091222
  3. OXIVENT [Suspect]
     Indication: CHRONIC OBSTRUCTIVE PULMONARY DISEASE
     Route: 065
     Dates: start: 20091215, end: 20091222

REACTIONS (2)
  - THROAT TIGHTNESS [None]
  - DYSPNOEA [None]
